FAERS Safety Report 4302399-3 (Version None)
Quarter: 2004Q1

REPORT INFORMATION
  Report Type: 
  Country: None (occurrence: None)
  Receive Date: 20040223
  Receipt Date: 20040223
  Transmission Date: 20041129
  Serious: Yes (Other)
  Sender: FDA-Public Use
  Company Number: None

PATIENT
  Sex: Female
  Weight: 49.8957 kg

DRUGS (1)
  1. MERREM [Suspect]
     Indication: CELLULITIS
     Dosage: 1 G Q 8 IV
     Route: 042
     Dates: start: 20031230, end: 20040202

REACTIONS (1)
  - RASH [None]
